FAERS Safety Report 13288611 (Version 17)
Quarter: 2024Q2

REPORT INFORMATION
  Report Type: Spontaneous
  Country: US (occurrence: US)
  Receive Date: 20170302
  Receipt Date: 20240625
  Transmission Date: 20240716
  Serious: Yes (Other)
  Sender: FDA-Public Use
  Company Number: US-PFIZER INC-2017079065

PATIENT
  Age: 67 Year
  Sex: Female
  Weight: 58.97 kg

DRUGS (2)
  1. PREMARIN [Suspect]
     Active Substance: ESTROGENS, CONJUGATED
     Indication: Hormone therapy
     Dosage: 1 IN THE MORNING, 0.9
  2. PREMARIN [Suspect]
     Active Substance: ESTROGENS, CONJUGATED
     Indication: Menopausal symptoms
     Dosage: 0.9 MG, 1X/DAY
     Route: 048

REACTIONS (11)
  - Mental impairment [Unknown]
  - Withdrawal syndrome [Unknown]
  - Blood pressure increased [Unknown]
  - Memory impairment [Unknown]
  - Visual impairment [Unknown]
  - Panic reaction [Unknown]
  - Feeling jittery [Unknown]
  - Arthritis [Not Recovered/Not Resolved]
  - Illness [Unknown]
  - Vertigo [Unknown]
  - Hypoacusis [Unknown]
